FAERS Safety Report 4904223-4 (Version None)
Quarter: 2006Q1

REPORT INFORMATION
  Report Type: 
  Country: None (occurrence: None)
  Receive Date: 20060208
  Receipt Date: 20050811
  Transmission Date: 20060701
  Serious: No
  Sender: FDA-Public Use
  Company Number: US-GLAXOSMITHKLINE-A0569841A

PATIENT
  Age: 15 Year
  Sex: Male

DRUGS (2)
  1. PAROXETINE HCL [Suspect]
     Dosage: 30MG PER DAY
     Route: 048
  2. MAGNESIUM [Concomitant]

REACTIONS (3)
  - DEVELOPMENTAL DELAY [None]
  - DRUG INEFFECTIVE [None]
  - HAIR GROWTH ABNORMAL [None]
